FAERS Safety Report 10079388 (Version 2)
Quarter: 2014Q2

REPORT INFORMATION
  Report Type: Report from Study
  Country: CA (occurrence: CA)
  Receive Date: 20140415
  Receipt Date: 20140418
  Transmission Date: 20141212
  Serious: Yes (Hospitalization, Other)
  Sender: FDA-Public Use
  Company Number: PHHY2014CA045435

PATIENT
  Sex: Female

DRUGS (4)
  1. SANDOSTATIN LAR [Suspect]
     Indication: GASTROINTESTINAL STROMAL TUMOUR
     Dosage: 10 MG, ONCE A MONTH
     Route: 030
     Dates: start: 20130125
  2. SANDOSTATIN LAR [Suspect]
     Indication: DIARRHOEA
  3. SANDOSTATIN [Suspect]
     Indication: GASTROINTESTINAL STROMAL TUMOUR
     Dosage: 100 UG, TID
     Route: 058
     Dates: start: 20130123, end: 20130206
  4. SANDOSTATIN [Suspect]
     Indication: DIARRHOEA

REACTIONS (4)
  - Fistula discharge [Unknown]
  - Abdominal wall abscess [Recovered/Resolved]
  - Neoplasm recurrence [Unknown]
  - Blood pressure systolic increased [Unknown]
